FAERS Safety Report 8123647-8 (Version None)
Quarter: 2012Q1

REPORT INFORMATION
  Report Type: 
  Country: None (occurrence: None)
  Receive Date: 20120208
  Receipt Date: 20120206
  Transmission Date: 20120608
  Serious: Yes (Other)
  Sender: FDA-Public Use
  Company Number: PHHY2011IT72035

PATIENT
  Sex: Female

DRUGS (2)
  1. EXJADE [Suspect]
     Indication: HAEMOSIDEROSIS
  2. EXJADE [Suspect]
     Indication: CARDIAC SIDEROSIS
     Dosage: 5000 UG/KG, DAILY
     Route: 048
     Dates: start: 20091009, end: 20110520

REACTIONS (2)
  - MYOCLONUS [None]
  - PARAESTHESIA [None]
